FAERS Safety Report 6208101-2 (Version None)
Quarter: 2009Q2

REPORT INFORMATION
  Report Type: 
  Country: None (occurrence: None)
  Receive Date: 20090529
  Receipt Date: 20090212
  Transmission Date: 20091009
  Serious: No
  Sender: FDA-Public Use
  Company Number: US-KINGPHARMUSA00001-K200801513

PATIENT
  Sex: Male
  Weight: 76.272 kg

DRUGS (8)
  1. FLECTOR [Suspect]
     Indication: NECK PAIN
     Dosage: 1 PATCH, BID
     Route: 061
     Dates: start: 20081105, end: 20081119
  2. NIACIN [Concomitant]
     Dosage: UNK
     Route: 048
  3. ATENOLOL [Concomitant]
     Indication: HYPERTENSION
     Dosage: 25 MG, QPM
     Route: 048
  4. LISINOPRIL [Concomitant]
     Indication: HYPERTENSION
     Dosage: 10 MG, QPM
     Route: 048
  5. OXYBUTYNIN CHLORIDE [Concomitant]
     Indication: URINARY TRACT DISORDER
     Dosage: 5 MG, QPM
     Route: 048
  6. OMEPRAZOLE [Concomitant]
     Indication: GASTROOESOPHAGEAL REFLUX DISEASE
     Dosage: 20 MG, QPM
     Route: 048
  7. ^QUIETENE^ [Concomitant]
     Dosage: 500 MG, QPM
     Route: 048
  8. ^QUIETENE^ [Concomitant]

REACTIONS (1)
  - DIZZINESS [None]
